FAERS Safety Report 9220082 (Version 1)
Quarter: 2013Q2

REPORT INFORMATION
  Report Type: Report from Study
  Country: RU (occurrence: RU)
  Receive Date: 20130409
  Receipt Date: 20130409
  Transmission Date: 20140414
  Serious: Yes (Death)
  Sender: FDA-Public Use
  Company Number: RU-ROCHE-1210994

PATIENT
  Sex: 0

DRUGS (2)
  1. ALTEPLASE [Suspect]
     Indication: PULMONARY EMBOLISM
     Dosage: 100 MG NOT EXCEEDING A TOTAL DOSE OF 1.5 MG/KG (NR,15 MG AS BOLUS, 85 MG AS 2-H INFUSION)
     Route: 042
  2. HEPARIN [Concomitant]
     Indication: ANTICOAGULANT THERAPY

REACTIONS (2)
  - Respiratory failure [Fatal]
  - Shock [Fatal]
